FAERS Safety Report 21221323 (Version 1)
Quarter: 2022Q3

REPORT INFORMATION
  Report Type: Report from Study
  Country: US (occurrence: US)
  Receive Date: 20220817
  Receipt Date: 20220817
  Transmission Date: 20221027
  Serious: Yes (Other)
  Sender: FDA-Public Use
  Company Number: US-BRISTOL-MYERS SQUIBB COMPANY-2022-089892

PATIENT
  Age: 64 Year
  Sex: Male
  Weight: 97.5 kg

DRUGS (3)
  1. REVLIMID [Suspect]
     Active Substance: LENALIDOMIDE
     Indication: Plasma cell myeloma
     Dosage: 14 DAYS OUT OF 21 DAYS
     Route: 048
     Dates: start: 20220329
  2. REVLIMID [Suspect]
     Active Substance: LENALIDOMIDE
     Route: 065
  3. DEXAMETHASONE [Concomitant]
     Active Substance: DEXAMETHASONE
     Indication: Product used for unknown indication

REACTIONS (7)
  - Skin discolouration [Unknown]
  - Abdominal pain upper [Unknown]
  - Dizziness [Unknown]
  - Insomnia [Unknown]
  - Feeding disorder [Unknown]
  - Feeling abnormal [Unknown]
  - Off label use [Unknown]
